FAERS Safety Report 25421373 (Version 1)
Quarter: 2025Q2

REPORT INFORMATION
  Report Type: Spontaneous
  Country: US (occurrence: US)
  Receive Date: 20250611
  Receipt Date: 20250611
  Transmission Date: 20250717
  Serious: No
  Sender: EMD SERONO INC
  Company Number: US-Merck Healthcare KGaA-2025028161

PATIENT
  Sex: Female
  Weight: 54 kg

DRUGS (2)
  1. MAVENCLAD [Suspect]
     Active Substance: CLADRIBINE
     Indication: Multiple sclerosis
     Dosage: YEAR ONE FIRST MONTH THERAPY
     Dates: start: 20241205
  2. MAVENCLAD [Suspect]
     Active Substance: CLADRIBINE
     Dosage: YEAR ONE SECOND MONTH THERAPY
     Dates: start: 202501

REACTIONS (5)
  - Fatigue [Unknown]
  - Gait disturbance [Unknown]
  - Temperature intolerance [Unknown]
  - Speech disorder [Unknown]
  - Balance disorder [Unknown]
